FAERS Safety Report 5842337-5 (Version None)
Quarter: 2008Q3

REPORT INFORMATION
  Report Type: 
  Country: None (occurrence: None)
  Receive Date: 20080731
  Receipt Date: 20080428
  Transmission Date: 20090109
  Serious: No
  Sender: FDA-Public Use
  Company Number: US200803001996

PATIENT
  Age: 79 Year
  Sex: Female
  Weight: 83.9 kg

DRUGS (8)
  1. BYETTA [Suspect]
     Indication: TYPE 2 DIABETES MELLITUS
     Dosage: 5 UG, 2/D, SUBCUTANEOUS; 5 UG, 2/D, SUBCUTANEOUS
     Route: 058
     Dates: start: 20080301, end: 20080423
  2. BYETTA [Suspect]
     Indication: TYPE 2 DIABETES MELLITUS
     Dosage: 5 UG, 2/D, SUBCUTANEOUS; 5 UG, 2/D, SUBCUTANEOUS
     Route: 058
     Dates: start: 20080301
  3. BYETTA [Suspect]
  4. METFORMIN HCL [Concomitant]
  5. GLYBURIDE [Concomitant]
  6. LISINOPRIL /USA/ (LISINOPRIL) [Concomitant]
  7. ATENOLOL [Concomitant]
  8. LIPITOR [Concomitant]

REACTIONS (10)
  - ABDOMINAL DISTENSION [None]
  - ABDOMINAL PAIN UPPER [None]
  - BLOOD GLUCOSE INCREASED [None]
  - DECREASED APPETITE [None]
  - DIARRHOEA [None]
  - LISTLESS [None]
  - NAUSEA [None]
  - RETCHING [None]
  - VOMITING [None]
  - WEIGHT DECREASED [None]
